FAERS Safety Report 6963649-8 (Version None)
Quarter: 2010Q3

REPORT INFORMATION
  Report Type: 
  Country: None (occurrence: None)
  Receive Date: 20100902
  Receipt Date: 20100823
  Transmission Date: 20110219
  Serious: Yes (Hospitalization)
  Sender: FDA-Public Use
  Company Number: US-ABBOTT-10P-163-0665910-00

PATIENT
  Age: 21 Year
  Sex: Male
  Weight: 61.29 kg

DRUGS (3)
  1. HUMIRA [Suspect]
     Indication: CROHN'S DISEASE
     Route: 058
  2. HUMIRA [Suspect]
     Route: 058
  3. MERCAPTOPURINE [Suspect]
     Indication: CROHN'S DISEASE
     Route: 048

REACTIONS (4)
  - DRUG INEFFECTIVE [None]
  - DUODENAL ULCER [None]
  - HYPOPHAGIA [None]
  - VOMITING [None]
